FAERS Safety Report 7539485-0 (Version None)
Quarter: 2011Q2

REPORT INFORMATION
  Report Type: 
  Country: None (occurrence: None)
  Receive Date: 20110609
  Receipt Date: 20110609
  Transmission Date: 20111010
  Serious: Yes (Other)
  Sender: FDA-Public Use
  Company Number: None

PATIENT
  Age: 62 Year
  Sex: Female
  Weight: 62.5964 kg

DRUGS (1)
  1. BOTOX [Suspect]
     Dosage: IMMEDIATE INJECTION ONLY
     Dates: start: 20110527, end: 20110527

REACTIONS (2)
  - VIITH NERVE PARALYSIS [None]
  - VISION BLURRED [None]
